FAERS Safety Report 9293744 (Version 1)
Quarter: 2013Q2

REPORT INFORMATION
  Report Type: Spontaneous
  Country: US (occurrence: US)
  Receive Date: 20130516
  Receipt Date: 20130516
  Transmission Date: 20140414
  Serious: Yes (Hospitalization)
  Sender: FDA-Public Use
  Company Number: US-BAYER-2013-060196

PATIENT
  Age: 27 Year
  Sex: Female
  Weight: 66 kg

DRUGS (16)
  1. YASMIN [Suspect]
     Indication: CONTRACEPTION
  2. YASMIN [Suspect]
     Indication: MENORRHAGIA
  3. OCELLA [Suspect]
  4. GARDASIL [Concomitant]
     Dosage: UNK
     Dates: start: 20090328, end: 20090509
  5. ALPRAZOLAM [Concomitant]
     Dosage: 0.25 MG, UNK
     Route: 048
     Dates: start: 20090704
  6. ZOLPIDEM TARTRATE [Concomitant]
     Dosage: 5 MG, UNK
     Route: 048
     Dates: start: 20090704
  7. CYMBALTA [Concomitant]
     Indication: DEPRESSION
     Dosage: UNK
     Route: 048
     Dates: start: 20090809
  8. MORPHINE [Concomitant]
     Indication: PAIN
     Dosage: 4 MG, UNK
     Route: 042
     Dates: start: 20090809
  9. ZOFRAN [Concomitant]
     Dosage: 4 MG, UNK
     Route: 042
     Dates: start: 20090809
  10. DILAUDID [Concomitant]
     Indication: PAIN
     Dosage: 2 MG, UNK
     Route: 042
     Dates: start: 20090809
  11. LEVAQUIN [Concomitant]
     Dosage: UNK
     Route: 042
     Dates: start: 20090809
  12. FLAGYL [Concomitant]
     Dosage: UNK
     Route: 042
     Dates: start: 20090809
  13. TORADOL [Concomitant]
     Dosage: 30 MG, UNK
     Route: 042
     Dates: start: 20090809
  14. CEFOXITIN [Concomitant]
     Dosage: 1 G,EVERY 8 HOURS
     Route: 042
     Dates: start: 20090809
  15. ZOSYN [Concomitant]
     Dosage: 4.5 G, EVERY 6 HOURS
     Route: 042
     Dates: start: 20090810
  16. PROTONIX [Concomitant]
     Dosage: 40 MG, UNK
     Route: 042
     Dates: start: 20090810

REACTIONS (1)
  - Pulmonary embolism [None]
